FAERS Safety Report 9630719 (Version 2)
Quarter: 2013Q4

REPORT INFORMATION
  Report Type: Spontaneous
  Country: US (occurrence: US)
  Receive Date: 20131018
  Receipt Date: 20131030
  Transmission Date: 20140711
  Serious: Yes (Other)
  Sender: FDA-Public Use
  Company Number: US-ACCORD-019932

PATIENT
  Age: 44 Year
  Sex: Male

DRUGS (19)
  1. CYCLOBENZAPRINE [Concomitant]
     Indication: MUSCLE SPASMS
     Dosage: AS NEEDED
  2. QUETIAPINE FUMARATE [Suspect]
     Indication: AFFECTIVE DISORDER
     Dosage: 1-3 TABLET, AT EVENING
  3. PEGINTERFERON ALFA-2B [Concomitant]
     Indication: HEPATITIS C VIRUS TEST POSITIVE
     Route: 058
  4. TENOFOVIR DISOPROXIL FUMARATE [Concomitant]
     Route: 048
  5. CODEINE W/GUAIFENESIN [Concomitant]
     Indication: COUGH
     Dosage: 15 MG/ 5 ML IN 10 ML, AS NEEDED
  6. TAMSULOSIN [Interacting]
     Indication: BENIGN PROSTATIC HYPERPLASIA
  7. ACETAMINOPHEN W/OXYCODONE [Concomitant]
     Indication: PAIN
     Dosage: 5/325 MG
  8. DOXAZOSIN [Interacting]
     Indication: BENIGN PROSTATIC HYPERPLASIA
     Dosage: AT BED TIME
  9. ESOMEPRAZOL [Concomitant]
  10. ONDANSETRON [Concomitant]
     Indication: NAUSEA
     Dosage: 4 MG AT EVERY 6 HR.
  11. LOSARTAN [Concomitant]
  12. TESTOSTERONE CYPIONATE [Suspect]
     Indication: HYPOGONADISM
     Route: 030
  13. LITHIUM [Concomitant]
     Dosage: AT BED TIME
  14. EFAVIRENZ [Concomitant]
     Route: 048
  15. NAPROXEN [Concomitant]
     Indication: PAIN
     Dosage: AS NEEDED
  16. RIBAVIRIN [Concomitant]
     Indication: HEPATITIS C VIRUS TEST POSITIVE
     Dosage: 400 MG- AT MORNING, AND 600 MG AT EVENING
  17. LOPERAMIDE [Concomitant]
     Indication: DIARRHOEA
     Dosage: AS NEEDED
  18. BOCEPREVIR [Interacting]
     Indication: HEPATITIS C VIRUS TEST POSITIVE
  19. EMTRICITABINE [Concomitant]
     Route: 048

REACTIONS (2)
  - Priapism [Recovered/Resolved]
  - Drug interaction [Unknown]
